FAERS Safety Report 6809589-6 (Version None)
Quarter: 2010Q2

REPORT INFORMATION
  Report Type: 
  Country: None (occurrence: None)
  Receive Date: 20100630
  Receipt Date: 20100628
  Transmission Date: 20101027
  Serious: Yes (Death)
  Sender: FDA-Public Use
  Company Number: PHHY2010CA29386

PATIENT
  Sex: Male

DRUGS (2)
  1. CLOZARIL [Suspect]
     Indication: SCHIZOPHRENIA
     Dosage: UNK
     Dates: start: 19971217
  2. CLOZARIL [Suspect]
     Dosage: 300 MG, QD
     Route: 048
     Dates: start: 20100214, end: 20100317

REACTIONS (1)
  - DEATH [None]
